FAERS Safety Report 6259354-6 (Version None)
Quarter: 2009Q3

REPORT INFORMATION
  Report Type: 
  Country: None (occurrence: None)
  Receive Date: 20090706
  Receipt Date: 20090625
  Transmission Date: 20100115
  Serious: Yes (Hospitalization)
  Sender: FDA-Public Use
  Company Number: SPV1-2009-01325

PATIENT
  Age: 24 Year

DRUGS (1)
  1. LIALDA [Suspect]
     Indication: DRUG USE FOR UNKNOWN INDICATION
     Dosage: G
     Dates: start: 20090521, end: 20090622

REACTIONS (2)
  - ARRHYTHMIA [None]
  - PALPITATIONS [None]
